FAERS Safety Report 9334484 (Version 1)
Quarter: 2013Q2

REPORT INFORMATION
  Report Type: Spontaneous
  Country: US (occurrence: US)
  Receive Date: 20130606
  Receipt Date: 20130606
  Transmission Date: 20140414
  Serious: No
  Sender: FDA-Public Use
  Company Number: US-AMGEN-USASP2013024673

PATIENT
  Age: 66 Year
  Sex: Female

DRUGS (4)
  1. PROLIA [Suspect]
     Indication: OSTEOPOROSIS POSTMENOPAUSAL
     Dosage: UNK
     Dates: start: 20130228
  2. PROLIA [Suspect]
  3. PAXIL                              /00500401/ [Concomitant]
  4. VITAMINS                           /00067501/ [Concomitant]

REACTIONS (2)
  - Back pain [Unknown]
  - Constipation [Unknown]
